FAERS Safety Report 9519321 (Version 1)
Quarter: 2013Q1

REPORT INFORMATION
  Report Type: Spontaneous
  Country: US (occurrence: None)
  Receive Date: 20130305
  Receipt Date: 20130305
  Transmission Date: 20140127
  Serious: Yes (Other)
  Sender: FDA-Public Use
  Company Number: 163-21880-12010758

PATIENT
  Age: 70 Year
  Sex: Male

DRUGS (12)
  1. REVLIMID (LENALIDOMIDE) (15 MILLIGRAM, CAPSULES) [Suspect]
     Indication: NON-HODGKIN^S LYMPHOMA
     Dosage: 15 MG, QD FOR 21/28 DAYS, PO
     Route: 048
     Dates: start: 201108, end: 2011
  2. PREDNISONE (PREDNISONE) (UNKNOWN) [Concomitant]
  3. ALENDRONATE (ALENDRONATE SODIUM) (UNKNOWN)? [Concomitant]
  4. OXYCARBAZEPINE (OXCARBAZEPINE) (UNKNOWN) [Concomitant]
  5. NABUMETONE (NABUMETONE) (UNKNOWN) [Concomitant]
  6. HYTRIN (TERAZOSIN HYDROCHLORIDE) (UNKNOWN) [Concomitant]
  7. PROZAC (FLUOXETINE HYDROCHLORIDE) (UNKNOWN) [Concomitant]
  8. NOVOLIN (INSULIN HUMAN INJECTION, ISOPHANE) (UNKNOWN) [Concomitant]
  9. METFORMIN (METFORMIN) (UNKNOWN) [Concomitant]
  10. ZOVIRAX (ACICLOVIR) (UNKNOWN) [Concomitant]
  11. FINASTERIDE (FINASTERIDE) (UNKNOWN) [Concomitant]
  12. RITUXAN (RITUXIMAB) (UNKNOWN) [Concomitant]

REACTIONS (1)
  - Therapeutic response decreased [None]
